FAERS Safety Report 5723415-8 (Version None)
Quarter: 2008Q2

REPORT INFORMATION
  Report Type: 
  Country: None (occurrence: None)
  Receive Date: 20080430
  Receipt Date: 20080428
  Transmission Date: 20081010
  Serious: Yes (Other)
  Sender: FDA-Public Use
  Company Number: PHNU2008DE01373

PATIENT
  Age: 61 Year
  Sex: Male
  Weight: 80 kg

DRUGS (2)
  1. EXJADE [Suspect]
     Indication: HAEMOSIDEROSIS
     Dosage: 500 MG, ONCE/SINGLE
     Route: 048
     Dates: start: 20071113, end: 20071113
  2. EXJADE [Suspect]
     Dosage: 500 MG, ONCE/SINGLE
     Route: 048
     Dates: start: 20080317, end: 20080317

REACTIONS (3)
  - CHILLS [None]
  - PYREXIA [None]
  - TACHYCARDIA [None]
